FAERS Safety Report 5297572-4 (Version None)
Quarter: 2007Q2

REPORT INFORMATION
  Report Type: 
  Country: None (occurrence: None)
  Receive Date: 20070416
  Receipt Date: 20070409
  Transmission Date: 20071010
  Serious: Yes (Death)
  Sender: FDA-Public Use
  Company Number: PHBS2006JP15990

PATIENT
  Age: 71 Year
  Sex: Male

DRUGS (10)
  1. IMATINIB MESYLATE [Suspect]
     Indication: GASTROINTESTINAL STROMAL TUMOUR
     Dosage: 400 MG/D
     Route: 048
     Dates: start: 20050301
  2. IMATINIB MESYLATE [Suspect]
     Dosage: 100 MG/D
     Route: 048
     Dates: start: 20051014, end: 20051020
  3. IMATINIB MESYLATE [Suspect]
     Dosage: 200 MG/D
     Route: 048
     Dates: start: 20051021, end: 20051027
  4. IMATINIB MESYLATE [Suspect]
     Dosage: 300 MG/D
     Route: 048
     Dates: start: 20051028, end: 20051103
  5. IMATINIB MESYLATE [Suspect]
     Dosage: 400 MG/D
     Route: 048
     Dates: start: 20051104
  6. MEXITIL [Concomitant]
     Indication: AORTIC VALVE STENOSIS
     Dosage: 400 MG/D
     Route: 048
  7. DIGOXIN [Concomitant]
     Indication: AORTIC VALVE STENOSIS
     Dosage: 0.125 MG/D
     Route: 048
  8. GASTROM [Concomitant]
     Indication: AORTIC VALVE STENOSIS
     Dosage: 3.0 G/D
     Route: 048
  9. LASIX [Concomitant]
     Indication: AORTIC VALVE STENOSIS
     Dosage: 10 MG/D
     Route: 048
  10. HARNAL [Concomitant]
     Indication: BENIGN PROSTATIC HYPERPLASIA
     Dosage: 0.2 MG/D
     Route: 048

REACTIONS (6)
  - CARDIAC ARREST [None]
  - DRUG ERUPTION [None]
  - FACE OEDEMA [None]
  - RASH GENERALISED [None]
  - STOMACH DISCOMFORT [None]
  - VOMITING [None]
